FAERS Safety Report 9883158 (Version 1)
Quarter: 2014Q1

REPORT INFORMATION
  Report Type: Report from Study
  Country: US (occurrence: US)
  Receive Date: 20140208
  Receipt Date: 20140208
  Transmission Date: 20141002
  Serious: Yes (Other)
  Sender: FDA-Public Use
  Company Number: US-ROCHE-1343776

PATIENT
  Age: 66 Year
  Sex: Female
  Weight: 79.9 kg

DRUGS (5)
  1. PEGASYS [Suspect]
     Indication: HEPATITIS C
     Route: 058
  2. COPEGUS [Suspect]
     Indication: HEPATITIS C
     Route: 048
     Dates: start: 201311
  3. COPEGUS [Suspect]
     Route: 048
  4. COPEGUS [Suspect]
     Route: 048
  5. INCIVEK [Suspect]
     Indication: CHRONIC HEPATITIS C
     Route: 048
     Dates: start: 201311

REACTIONS (2)
  - Syncope [Recovered/Resolved]
  - Anaemia [Recovered/Resolved]
